FAERS Safety Report 9697454 (Version 1)
Quarter: 2013Q4

REPORT INFORMATION
  Report Type: Spontaneous
  Country: US (occurrence: None)
  Receive Date: 20131119
  Receipt Date: 20131119
  Transmission Date: 20140711
  Serious: No
  Sender: FDA-Public Use
  Company Number: None

PATIENT
  Age: 22 Year
  Sex: Female
  Weight: 68.04 kg

DRUGS (1)
  1. MACROBID [Suspect]
     Indication: URINARY TRACT INFECTION
     Dosage: 1   TWICE DAILY  TAKEN BY MOUTH
     Route: 048
     Dates: start: 20131109, end: 20131116

REACTIONS (2)
  - Rash [None]
  - Feeling hot [None]
